FAERS Safety Report 12839594 (Version 2)
Quarter: 2016Q4

REPORT INFORMATION
  Report Type: Spontaneous
  Country: AT (occurrence: AT)
  Receive Date: 20161012
  Receipt Date: 20161023
  Transmission Date: 20170207
  Serious: Yes (Hospitalization, Other)
  Sender: FDA-Public Use
  Company Number: AT-AMGEN-AUTSP2016138430

PATIENT
  Age: 48 Year
  Sex: Male
  Weight: 128 kg

DRUGS (4)
  1. PROCORALAN [Concomitant]
     Active Substance: IVABRADINE
     Indication: HEART RATE ABNORMAL
  2. CRESTOR [Concomitant]
     Active Substance: ROSUVASTATIN CALCIUM
     Dosage: 40 UNK, QD
  3. EZETIMIBE. [Concomitant]
     Active Substance: EZETIMIBE
     Dosage: 10 UNK, QD
  4. REPATHA [Suspect]
     Active Substance: EVOLOCUMAB
     Indication: HYPERCHOLESTEROLAEMIA
     Dosage: 140 UNK, Q2WK
     Route: 058
     Dates: start: 20160823

REACTIONS (1)
  - Myocardial infarction [Recovered/Resolved]

NARRATIVE: CASE EVENT DATE: 20161002
